FAERS Safety Report 16759575 (Version 3)
Quarter: 2019Q4

REPORT INFORMATION
  Report Type: Spontaneous
  Country: CZ (occurrence: CZ)
  Receive Date: 20190830
  Receipt Date: 20191119
  Transmission Date: 20200122
  Serious: Yes (Other)
  Sender: FDA-Public Use
  Company Number: CZ-MYLANLABS-2019M1081121

PATIENT
  Age: 52 Year
  Sex: Male

DRUGS (9)
  1. ERDOSTEINE [Concomitant]
     Active Substance: ERDOSTEINE
     Indication: ASTHMA
     Dosage: UNK
  2. SALBUTAMOL [Concomitant]
     Active Substance: ALBUTEROL
     Indication: PRODUCT USED FOR UNKNOWN INDICATION
     Dosage: UNK, UNK (3X A DAY)
  3. FORMOTEROL [Suspect]
     Active Substance: FORMOTEROL
     Indication: ASTHMA
     Dosage: 12 UG, (TWO TIMES TWICE DAILY)
     Route: 055
  4. CICLESONIDE [Suspect]
     Active Substance: CICLESONIDE
     Dosage: 160 UG, BID (TWO TIMES TWICE DAILY)
     Route: 055
  5. FLUTIFORM [Concomitant]
     Active Substance: FLUTICASONE PROPIONATE\FORMOTEROL FUMARATE
     Indication: PRODUCT USED FOR UNKNOWN INDICATION
     Dosage: 250/10 ?G
     Route: 065
  6. CICLESONIDE [Suspect]
     Active Substance: CICLESONIDE
     Indication: ASTHMA
     Dosage: 160 UG, BID
     Route: 055
  7. LEVOCETIRIZINE [Suspect]
     Active Substance: LEVOCETIRIZINE
     Indication: ASTHMA
     Dosage: UNK
     Route: 065
  8. FORMOTEROL [Suspect]
     Active Substance: FORMOTEROL
     Dosage: 12 UG, (TWO TIMES TWICE DAILY)
     Route: 055
  9. SALBUTAMOL [Concomitant]
     Active Substance: ALBUTEROL
     Dosage: UNK, UPTO 5X A DAY
     Route: 065

REACTIONS (5)
  - Obstructive airways disorder [Recovering/Resolving]
  - Product use in unapproved indication [Unknown]
  - Nocturnal dyspnoea [Recovering/Resolving]
  - Dyspnoea exertional [Recovering/Resolving]
  - Cough [Recovering/Resolving]
